FAERS Safety Report 17139449 (Version 1)
Quarter: 2019Q4

REPORT INFORMATION
  Report Type: Spontaneous
  Country: US (occurrence: US)
  Receive Date: 20191211
  Receipt Date: 20191211
  Transmission Date: 20200122
  Serious: Yes (Other)
  Sender: FDA-Public Use
  Company Number: US-LUPIN PHARMACEUTICALS INC.-2019-08164

PATIENT
  Sex: Male

DRUGS (5)
  1. HYDROCORTISONE. [Suspect]
     Active Substance: HYDROCORTISONE
     Indication: ADDISON^S DISEASE
     Dosage: 20 MILLIGRAM, TID  (MORNING (10MG), AFTERNOON (5MG) AND EVENING (5MG))
     Route: 064
  2. FLUDROCORTISONE [Concomitant]
     Active Substance: FLUDROCORTISONE
     Indication: ADDISON^S DISEASE
     Dosage: 0.1 MILLIGRAM (AT AGE 34)
     Route: 064
  3. FLUDROCORTISONE [Concomitant]
     Active Substance: FLUDROCORTISONE
     Dosage: 0.1 MILLIGRAM, QD (AT AGE 36)
     Route: 064
  4. PREDNISONE. [Concomitant]
     Active Substance: PREDNISONE
     Indication: PRODUCT USED FOR UNKNOWN INDICATION
     Dosage: UNK
     Route: 064
  5. HYDROCORTISONE. [Suspect]
     Active Substance: HYDROCORTISONE
     Dosage: 25 MILLIGRAM, QD (AT AGE 36)
     Route: 064

REACTIONS (2)
  - Foetal heart rate deceleration abnormality [Unknown]
  - Foetal exposure during pregnancy [Unknown]
